FAERS Safety Report 10158278 (Version 2)
Quarter: 2014Q2

REPORT INFORMATION
  Report Type: Spontaneous
  Country: ES (occurrence: ES)
  Receive Date: 20140507
  Receipt Date: 20140519
  Transmission Date: 20141212
  Serious: Yes (Hospitalization, Other)
  Sender: FDA-Public Use
  Company Number: ES-WATSON-2014-09052

PATIENT
  Age: 45 Year
  Sex: Male

DRUGS (4)
  1. METHYLPHENIDATE HYDROCHLORIDE (WATSON LABORATORIES) [Suspect]
     Indication: DRUG ABUSE
     Dosage: 3000 MG, DAILY( 30 TABLETS OF 10 MG EACH)
     Route: 042
  2. CLONAZEPAM (UNKNOWN) [Suspect]
     Indication: DRUG ABUSE
     Dosage: 6 MG, DAILY
     Route: 065
  3. METHADONE [Suspect]
     Indication: DRUG ABUSE
     Dosage: 35 MG, DAILY
     Route: 065
  4. METHADONE [Suspect]
     Dosage: UNK
     Route: 065

REACTIONS (3)
  - Somatic delusion [Not Recovered/Not Resolved]
  - Drug abuse [Unknown]
  - Overdose [Unknown]
